FAERS Safety Report 13044393 (Version 1)
Quarter: 2016Q4

REPORT INFORMATION
  Report Type: Spontaneous
  Country: US (occurrence: US)
  Receive Date: 20161220
  Receipt Date: 20161220
  Transmission Date: 20170207
  Serious: No
  Sender: FDA-Public Use
  Company Number: US-ROCHE-1040719

PATIENT
  Age: 38 Year
  Sex: Female
  Weight: 85.35 kg

DRUGS (1)
  1. ZELBORAF [Suspect]
     Active Substance: VEMURAFENIB
     Indication: MALIGNANT MELANOMA
     Dosage: NOT REPORTED
     Route: 065

REACTIONS (5)
  - Sunburn [Unknown]
  - Mass [Unknown]
  - Melanocytic naevus [Unknown]
  - Fatigue [Unknown]
  - Rash [Recovered/Resolved]

NARRATIVE: CASE EVENT DATE: 20120130
